FAERS Safety Report 8488424-7 (Version None)
Quarter: 2012Q2

REPORT INFORMATION
  Report Type: 
  Country: None (occurrence: None)
  Receive Date: 20120625
  Receipt Date: 20120615
  Transmission Date: 20120825
  Serious: Yes (Hospitalization, Other)
  Sender: FDA-Public Use
  Company Number: AUR-APL-2012-01719

PATIENT
  Age: 79 Year
  Sex: Male

DRUGS (8)
  1. RAMIPRIL [Suspect]
     Indication: CARDIOVASCULAR DISORDER
     Dosage: 20 MG (10 MG,2 IN 1 D),ORAL
     Route: 048
     Dates: end: 20120307
  2. LANTUS [Concomitant]
  3. BUPRENORPHINE [Concomitant]
  4. METHYLPHENIDATE HCL [Concomitant]
  5. HJERTEMAGNYL ^DAK^ (ALBYL-ENTEROSOLUBILE) [Concomitant]
  6. SODIUM POLYSTYRENE SULFONATE [Concomitant]
  7. SIMVASTATIN [Concomitant]
  8. PENCILLIN NOS (PENCILLIN NOS) [Concomitant]

REACTIONS (6)
  - PNEUMONIA [None]
  - HYPERKALAEMIA [None]
  - BLOOD CREATININE INCREASED [None]
  - GLOMERULAR FILTRATION RATE DECREASED [None]
  - DIABETES MELLITUS INADEQUATE CONTROL [None]
  - GLYCOSYLATED HAEMOGLOBIN INCREASED [None]
